FAERS Safety Report 8882194 (Version 1)
Quarter: 2012Q4

REPORT INFORMATION
  Report Type: Report from Study
  Country: US (occurrence: US)
  Receive Date: 20121102
  Receipt Date: 20121102
  Transmission Date: 20130627
  Serious: Yes (Other)
  Sender: FDA-Public Use
  Company Number: US-ABBOTT-12P-163-1000843-00

PATIENT
  Age: 65 Year
  Sex: Male

DRUGS (1)
  1. HUMIRA [Suspect]
     Indication: PRODUCT USED FOR UNKNOWN INDICATION
     Dates: end: 2012

REACTIONS (5)
  - Scrotal mass [Recovered/Resolved]
  - Epididymal disorder [Unknown]
  - Tuberculin test positive [Unknown]
  - Tuberculin test positive [Unknown]
  - Granuloma [Unknown]
